FAERS Safety Report 11180829 (Version 1)
Quarter: 2015Q2

REPORT INFORMATION
  Report Type: Spontaneous
  Country: US (occurrence: US)
  Receive Date: 20150611
  Receipt Date: 20150611
  Transmission Date: 20150821
  Serious: Yes (Other)
  Sender: FDA-Public Use
  Company Number: US-ACTAVIS-2015-11298

PATIENT
  Age: 56 Year
  Sex: Female

DRUGS (1)
  1. ACETIC ACID (UNKNOWN) [Suspect]
     Active Substance: ACETIC ACID
     Indication: COLPOSCOPY
     Dosage: UNK
     Route: 067

REACTIONS (3)
  - Chemical injury [Recovered/Resolved with Sequelae]
  - Pain [None]
  - Vulvovaginal discomfort [None]
